FAERS Safety Report 7799045-3 (Version None)
Quarter: 2011Q4

REPORT INFORMATION
  Report Type: 
  Country: None (occurrence: None)
  Receive Date: 20111004
  Receipt Date: 20111004
  Transmission Date: 20120403
  Serious: No
  Sender: FDA-Public Use
  Company Number: None

PATIENT
  Sex: Female
  Weight: 86.1834 kg

DRUGS (1)
  1. FENTANYL CITRATE [Suspect]
     Indication: SEDATION
     Dosage: 225 MCG X1 IV  FENTANYL + 10 MG X1 IV VERSED + 50 MG  X1 IV BENADRYL
     Route: 042
     Dates: start: 20110929

REACTIONS (2)
  - DRUG INEFFECTIVE [None]
  - INADEQUATE ANALGESIA [None]
